FAERS Safety Report 6253228-2 (Version None)
Quarter: 2009Q3

REPORT INFORMATION
  Report Type: 
  Country: None (occurrence: None)
  Receive Date: 20090701
  Receipt Date: 20090622
  Transmission Date: 20100115
  Serious: Yes (Death)
  Sender: FDA-Public Use
  Company Number: US-JNJFOC-20080806202

PATIENT
  Sex: Male
  Weight: 116.12 kg

DRUGS (14)
  1. DURAGESIC-100 [Suspect]
     Route: 062
  2. DURAGESIC-100 [Suspect]
     Route: 062
  3. DURAGESIC-100 [Suspect]
     Route: 062
  4. DURAGESIC-100 [Suspect]
     Route: 062
  5. DURAGESIC-100 [Suspect]
     Route: 062
  6. DURAGESIC-100 [Suspect]
     Route: 062
  7. DURAGESIC-100 [Suspect]
     Indication: PAIN
     Route: 062
  8. ULTRAM [Concomitant]
     Indication: PAIN
  9. SYNTHROID [Concomitant]
  10. LEXAPRO [Concomitant]
  11. SOMA [Concomitant]
     Indication: PAIN
  12. UNSPECIFIED BLOOD PRESSURE MEDS [Concomitant]
  13. ^CHOLESTEROL MEDICATION^ [Concomitant]
  14. ROBITUSSIN A-C [Concomitant]
     Indication: COUGH
     Dosage: AS NECESSARY

REACTIONS (3)
  - INAPPROPRIATE SCHEDULE OF DRUG ADMINISTRATION [None]
  - NARCOTIC INTOXICATION [None]
  - SEDATION [None]
